FAERS Safety Report 9752980 (Version 1)
Quarter: 2013Q4

REPORT INFORMATION
  Report Type: Spontaneous
  Country: CO (occurrence: CO)
  Receive Date: 20131213
  Receipt Date: 20131213
  Transmission Date: 20140711
  Serious: Yes (Other)
  Sender: FDA-Public Use
  Company Number: CO-JNJFOC-20131200844

PATIENT
  Age: 67 Year
  Sex: Female
  Weight: 55 kg

DRUGS (4)
  1. INVEGA [Suspect]
     Indication: SCHIZOPHRENIA
     Route: 048
     Dates: start: 201311
  2. LITHIUM CARBONATE [Concomitant]
     Route: 048
  3. QUETIAPINE [Concomitant]
     Route: 065
  4. OXYBUTYNIN [Concomitant]
     Route: 065

REACTIONS (3)
  - Coma [Not Recovered/Not Resolved]
  - Tremor [Recovered/Resolved]
  - Musculoskeletal stiffness [Recovered/Resolved]
